FAERS Safety Report 24271625 (Version 1)
Quarter: 2024Q3

REPORT INFORMATION
  Report Type: Spontaneous
  Country: GB (occurrence: GB)
  Receive Date: 20240902
  Receipt Date: 20240902
  Transmission Date: 20241016
  Serious: Yes (Death, Other)
  Sender: NOVO NORDISK
  Company Number: GB-NOVOPROD-1275991

PATIENT
  Age: 75 Year
  Sex: Male

DRUGS (1)
  1. TRESIBA [Suspect]
     Active Substance: INSULIN DEGLUDEC
     Indication: Product used for unknown indication
     Dosage: UNK (ONCE DAILY)

REACTIONS (2)
  - Diabetic ketoacidosis [Fatal]
  - Drug ineffective [Fatal]
